FAERS Safety Report 5133779-4 (Version None)
Quarter: 2006Q4

REPORT INFORMATION
  Report Type: 
  Country: None (occurrence: None)
  Receive Date: 20061024
  Receipt Date: 20061006
  Transmission Date: 20070319
  Serious: Yes (Life-Threatening)
  Sender: FDA-Public Use
  Company Number: CH-ELI_LILLY_AND_COMPANY-CH200610001671

PATIENT
  Age: 75 Year
  Sex: Male

DRUGS (5)
  1. XIGRIS [Suspect]
     Indication: SEPSIS
     Dosage: 1.6 MG, EVERY HOUR
     Route: 042
     Dates: start: 20050707, end: 20050708
  2. NEXIUM [Concomitant]
     Indication: GASTRIC PH DECREASED
     Dosage: 40 MG, 2/D
     Route: 042
     Dates: start: 20050706
  3. FLAGYL [Concomitant]
     Indication: SEPSIS
     Dosage: 1500 MG, DAILY (1/D)
     Route: 042
     Dates: start: 20050706
  4. MAXIPIME                                /GFR/ [Concomitant]
     Indication: SEPSIS
     Dosage: 4 G, DAILY (1/D)
     Route: 042
     Dates: start: 20050706
  5. DIFLUCAN [Concomitant]
     Indication: SEPSIS
     Dosage: 400 MG, DAILY (1/D)
     Route: 042
     Dates: start: 20050706

REACTIONS (1)
  - HEPATIC RUPTURE [None]
